FAERS Safety Report 9301736 (Version 1)
Quarter: 2013Q2

REPORT INFORMATION
  Report Type: Other
  Country: US (occurrence: US)
  Receive Date: 20130521
  Receipt Date: 20130521
  Transmission Date: 20140414
  Serious: Yes (Hospitalization, Other)
  Sender: FDA-Public Use
  Company Number: US-WATSON-2013-08483

PATIENT
  Age: 73 Year
  Sex: Female
  Weight: 63 kg

DRUGS (2)
  1. METOPROLOL SUCCINATE (WATSON LABORATORIES) [Suspect]
     Indication: HEART RATE IRREGULAR
     Dosage: 100 MG, DAILY
     Route: 048
     Dates: start: 20121012, end: 20121128
  2. LIPITOR [Concomitant]
     Indication: BLOOD CHOLESTEROL INCREASED
     Dosage: 250 MG, DAILY
     Route: 048
     Dates: start: 20121001, end: 20121026

REACTIONS (8)
  - Drug ineffective [Not Recovered/Not Resolved]
  - Extrasystoles [Recovered/Resolved]
  - Heart rate increased [Recovered/Resolved]
  - Poor quality sleep [Recovered/Resolved]
  - Road traffic accident [Recovered/Resolved]
  - Upper limb fracture [Recovered/Resolved]
  - Facial bones fracture [Recovered/Resolved]
  - Therapeutic response unexpected with drug substitution [None]
